FAERS Safety Report 11059292 (Version 1)
Quarter: 2015Q2

REPORT INFORMATION
  Report Type: Spontaneous
  Country: IT (occurrence: IT)
  Receive Date: 20150423
  Receipt Date: 20150423
  Transmission Date: 20150821
  Serious: Yes (Disabling)
  Sender: FDA-Public Use
  Company Number: PHHY2015IT046129

PATIENT
  Age: 78 Year
  Sex: Male

DRUGS (2)
  1. ELIGARD [Concomitant]
     Active Substance: LEUPROLIDE ACETATE
     Indication: PROSTATE CANCER METASTATIC
     Dosage: 22.5 MG, UNK
     Route: 058
  2. ZOMETA [Suspect]
     Active Substance: ZOLEDRONIC ACID
     Indication: METASTASES TO BONE
     Dosage: 4 MG, CYCLIC
     Route: 042
     Dates: start: 20120901, end: 20141201

REACTIONS (2)
  - Abscess jaw [Recovering/Resolving]
  - Bone fissure [Recovering/Resolving]

NARRATIVE: CASE EVENT DATE: 20150101
